FAERS Safety Report 19312355 (Version 1)
Quarter: 2021Q2

REPORT INFORMATION
  Report Type: Spontaneous
  Country: AU (occurrence: AU)
  Receive Date: 20210527
  Receipt Date: 20210527
  Transmission Date: 20210717
  Serious: Yes (Other)
  Sender: FDA-Public Use
  Company Number: AU-ALKEM LABORATORIES LIMITED-AU-ALKEM-2021-02922

PATIENT
  Age: 60 Year
  Sex: Female

DRUGS (2)
  1. LYRICA [Suspect]
     Active Substance: PREGABALIN
     Indication: PRODUCT USED FOR UNKNOWN INDICATION
     Dosage: UNK
     Route: 065
  2. GABAPENTIN. [Suspect]
     Active Substance: GABAPENTIN
     Indication: PRODUCT USED FOR UNKNOWN INDICATION
     Dosage: UNK
     Route: 065

REACTIONS (11)
  - Crying [Unknown]
  - Speech disorder [Unknown]
  - White blood cell count decreased [Unknown]
  - Multiple sclerosis relapse [Unknown]
  - Product use in unapproved indication [Unknown]
  - Eating disorder [Unknown]
  - Asthenia [Unknown]
  - Tremor [Unknown]
  - Facial pain [Unknown]
  - Oral pain [Unknown]
  - Pain in jaw [Unknown]
